FAERS Safety Report 9659771 (Version 1)
Quarter: 2013Q4

REPORT INFORMATION
  Report Type: Spontaneous
  Country: US (occurrence: US)
  Receive Date: 20131031
  Receipt Date: 20131031
  Transmission Date: 20140711
  Serious: No
  Sender: FDA-Public Use
  Company Number: US-PFIZER INC-2013310515

PATIENT
  Age: 65 Year
  Sex: Female
  Weight: 60.77 kg

DRUGS (3)
  1. XELJANZ [Suspect]
     Indication: RHEUMATOID ARTHRITIS
     Dosage: 5 MG, 1X/DAY
     Route: 048
     Dates: start: 20130926
  2. XELJANZ [Suspect]
     Indication: OSTEOARTHRITIS
  3. PREDNISONE [Concomitant]
     Dosage: UNK

REACTIONS (2)
  - Off label use [Unknown]
  - Faeces discoloured [Not Recovered/Not Resolved]
